FAERS Safety Report 15481413 (Version 1)
Quarter: 2018Q4

REPORT INFORMATION
  Report Type: Other
  Country: ES (occurrence: ES)
  Receive Date: 20181010
  Receipt Date: 20181010
  Transmission Date: 20190205
  Serious: Yes (Other)
  Sender: FDA-Public Use
  Company Number: ES-APOTEX-2018AP022278

PATIENT
  Age: 62 Year
  Sex: Female

DRUGS (4)
  1. AZITHROMYCIN ANHYDROUS. [Suspect]
     Active Substance: AZITHROMYCIN ANHYDROUS
     Indication: PNEUMONIA
     Dosage: EVERY 12 HOURS
     Route: 048
     Dates: start: 20180116, end: 20180126
  2. COTRIMOXAZOL [Interacting]
     Active Substance: SULFAMETHOXAZOLE\TRIMETHOPRIM
     Indication: PNEUMONIA
     Dosage: EVERY 6 HOURS
     Route: 042
     Dates: start: 20180115, end: 20180206
  3. PIPERACILINA + TAZOBACTAM [Interacting]
     Active Substance: PIPERACILLIN SODIUM\TAZOBACTAM SODIUM
     Indication: PNEUMONIA
     Dosage: UNK
     Route: 042
     Dates: start: 20180115, end: 20180120
  4. CICLOSPORIN [Interacting]
     Active Substance: CYCLOSPORINE
     Indication: DERMATOMYOSITIS
     Dosage: EVERY 12 HOURS
     Route: 048
     Dates: start: 20160604, end: 20180122

REACTIONS (3)
  - Hyperkalaemia [Recovered/Resolved]
  - Metabolic acidosis [Recovered/Resolved]
  - Acute kidney injury [Recovered/Resolved]

NARRATIVE: CASE EVENT DATE: 20180116
